FAERS Safety Report 15078613 (Version 1)
Quarter: 2018Q2

REPORT INFORMATION
  Report Type: Report from Study
  Country: US (occurrence: US)
  Receive Date: 20180627
  Receipt Date: 20180627
  Transmission Date: 20180711
  Serious: No
  Sender: FDA-Public Use
  Company Number: US-AMGEN-USASL2017015436

PATIENT
  Age: 58 Year
  Sex: Female

DRUGS (4)
  1. PROLIA [Suspect]
     Active Substance: DENOSUMAB
     Indication: TYPE IIA HYPERLIPIDAEMIA
     Dosage: 60 MG, Q6MO
     Route: 058
  2. PROLIA [Suspect]
     Active Substance: DENOSUMAB
     Indication: MENOPAUSAL SYMPTOMS
  3. CALCIUM W/ERGOCALCIFEROL [Concomitant]
     Dosage: 600 MG AND 50000 UNITS, UNK
  4. PROLIA [Suspect]
     Active Substance: DENOSUMAB
     Indication: HYPERKALAEMIA

REACTIONS (1)
  - Off label use [Unknown]
